FAERS Safety Report 4844559-9 (Version None)
Quarter: 2005Q4

REPORT INFORMATION
  Report Type: 
  Country: None (occurrence: None)
  Receive Date: 20051130
  Receipt Date: 20051130
  Transmission Date: 20060501
  Serious: No
  Sender: FDA-Public Use
  Company Number: None

PATIENT
  Age: 27 Year
  Sex: Male
  Weight: 113.3993 kg

DRUGS (3)
  1. LITHOBID [Suspect]
     Dosage: 1AM 3PM
     Dates: start: 20050802
  2. SEROQUEL [Suspect]
  3. . [Concomitant]

REACTIONS (11)
  - ALCOHOL USE [None]
  - APATHY [None]
  - DEPRESSION [None]
  - HYPERSOMNIA [None]
  - IMPAIRED SELF-CARE [None]
  - INSOMNIA [None]
  - MEMORY IMPAIRMENT [None]
  - SELF-MEDICATION [None]
  - SOCIAL AVOIDANT BEHAVIOUR [None]
  - THINKING ABNORMAL [None]
  - WEIGHT INCREASED [None]
